FAERS Safety Report 7930151-6 (Version None)
Quarter: 2011Q4

REPORT INFORMATION
  Report Type: 
  Country: None (occurrence: None)
  Receive Date: 20111108
  Receipt Date: 20110423
  Transmission Date: 20120403
  Serious: Yes (Other)
  Sender: FDA-Public Use
  Company Number: PHHY2011US35298

PATIENT
  Sex: Female

DRUGS (2)
  1. OXYCODONE HCL [Concomitant]
  2. ZOMETA [Suspect]
     Dosage: 1 DF, QMO, INJECTION NOS

REACTIONS (1)
  - DEPRESSED MOOD [None]
